FAERS Safety Report 5894879-4 (Version None)
Quarter: 2008Q3

REPORT INFORMATION
  Report Type: 
  Country: None (occurrence: None)
  Receive Date: 20080924
  Receipt Date: 20080717
  Transmission Date: 20090109
  Serious: No
  Sender: FDA-Public Use
  Company Number: US-ASTRAZENECA-2008UW14399

PATIENT
  Age: 82 Year
  Sex: Female
  Weight: 61.2 kg

DRUGS (5)
  1. SEROQUEL [Suspect]
     Indication: AGITATION
     Dosage: 25 MG QAM AND 75 MG QHS
     Route: 048
     Dates: end: 20080301
  2. SEROQUEL [Suspect]
     Route: 048
     Dates: start: 20080301
  3. SEROQUEL [Suspect]
     Dosage: 25 MG QAM AND 75 MG QHS
     Route: 048
  4. ARICEPT [Concomitant]
  5. NAMENDA [Concomitant]

REACTIONS (3)
  - DYSARTHRIA [None]
  - MUSCULAR WEAKNESS [None]
  - THINKING ABNORMAL [None]
